FAERS Safety Report 9487390 (Version 2)
Quarter: 2013Q3

REPORT INFORMATION
  Report Type: Spontaneous
  Country: US (occurrence: US)
  Receive Date: 20130725
  Receipt Date: 20130725
  Transmission Date: 20140515
  Serious: No
  Sender: FDA-Public Use
  Company Number: US-GLAXOSMITHKLINE-A0351953A

PATIENT
  Age: 46 Year
  Sex: Female
  Weight: 81.63 kg

DRUGS (10)
  1. AVANDIA [Suspect]
     Indication: TYPE 2 DIABETES MELLITUS
     Dosage: 4MG PER DAY
     Route: 048
     Dates: start: 200103, end: 200106
  2. AVANDIA [Suspect]
     Indication: TYPE 2 DIABETES MELLITUS
     Dosage: 8MG PER DAY
     Route: 048
     Dates: start: 200106
  3. GLUCOPHAGE [Concomitant]
  4. CARDIZEM [Concomitant]
  5. VASOTEC [Concomitant]
  6. KLONOPIN [Concomitant]
  7. HUMULIN NPH INSULIN [Concomitant]
     Dosage: 28UNIT PER DAY
  8. REGULAR INSULIN [Concomitant]
     Dosage: 16UNIT PER DAY
  9. LUVOX [Concomitant]
  10. CELEBREX [Concomitant]

REACTIONS (5)
  - Palpitations [Not Recovered/Not Resolved]
  - Weight increased [Not Recovered/Not Resolved]
  - Fluid retention [Not Recovered/Not Resolved]
  - Joint swelling [Not Recovered/Not Resolved]
  - Chest pain [Unknown]
